FAERS Safety Report 5077035-1 (Version None)
Quarter: 2006Q3

REPORT INFORMATION
  Report Type: 
  Country: None (occurrence: None)
  Receive Date: 20060810
  Receipt Date: 20060802
  Transmission Date: 20061208
  Serious: Yes (Hospitalization)
  Sender: FDA-Public Use
  Company Number: JP-ROCHE-458350

PATIENT
  Sex: Male

DRUGS (2)
  1. PEGASYS [Suspect]
     Route: 058
     Dates: start: 20051215, end: 20060715
  2. NEO-MINOPHAGEN C [Concomitant]
     Dosage: ROUTE REPORTED AS: INTRAVENOUS NOT OTHERWISE SPECIFIED.
     Route: 042

REACTIONS (1)
  - COLITIS ISCHAEMIC [None]
